FAERS Safety Report 9248071 (Version 1)
Quarter: 2013Q1

REPORT INFORMATION
  Report Type: Spontaneous
  Country: US (occurrence: None)
  Receive Date: 20130305
  Receipt Date: 20130305
  Transmission Date: 20140127
  Serious: Yes (Disabling)
  Sender: FDA-Public Use
  Company Number: 163-21880-12053654

PATIENT
  Age: 50 Year
  Sex: Male
  Weight: 85.64 kg

DRUGS (9)
  1. REVLIMID (LENALIDOMIDE) (CAPSULES) [Suspect]
     Indication: PLASMA CELL MYELOMA
     Route: 048
     Dates: start: 20110819, end: 2011
  2. HYDROMORPHONE (HYDROMORPHONE ) [Concomitant]
  3. NEXIUM(ESOMEPRAZOLE) [Concomitant]
  4. LORAZEPAM(LORAZEPAM) [Concomitant]
  5. PROBIOTIC(BIFIDOBACTERIUM LACTIS) [Concomitant]
  6. TEMAZEPAM(TEMAZEPAM) [Concomitant]
  7. ASPIRIN(ACETYLSALICYLIC ACID) [Concomitant]
  8. GABAPENTIN(GABAPENTIN) [Concomitant]
  9. ACYCLOVIR(ACICLOVIR) [Concomitant]

REACTIONS (3)
  - Muscle spasms [None]
  - Back pain [None]
  - Arthralgia [None]
